FAERS Safety Report 8571247-8 (Version None)
Quarter: 2012Q3

REPORT INFORMATION
  Report Type: 
  Country: None (occurrence: None)
  Receive Date: 20120730
  Receipt Date: 20120730
  Transmission Date: 20120928
  Serious: Yes (Life-Threatening, Hospitalization)
  Sender: FDA-Public Use
  Company Number: None

PATIENT
  Age: 78 Year
  Sex: Male

DRUGS (1)
  1. LISINOPRIL [Suspect]
     Indication: HYPERTENSION
     Dosage: 10 MG   EVERY DAY PO
     Route: 048
     Dates: start: 20120104, end: 20120404

REACTIONS (3)
  - RESPIRATORY FAILURE [None]
  - ANGIOEDEMA [None]
  - SWOLLEN TONGUE [None]
